FAERS Safety Report 21927333 (Version 1)
Quarter: 2023Q1

REPORT INFORMATION
  Report Type: Spontaneous
  Country: US (occurrence: None)
  Receive Date: 20230129
  Receipt Date: 20230129
  Transmission Date: 20230418
  Serious: Yes (Other)
  Sender: FDA-Public Use
  Company Number: None

PATIENT
  Age: 38 Year
  Sex: Female
  Weight: 105.75 kg

DRUGS (1)
  1. ACETAMINOPHEN, DEXTROMETHORPHAN HYDROBROMIDE, AND DOXYLAMINE SUCCINATE [Suspect]
     Active Substance: ACETAMINOPHEN\DEXTROMETHORPHAN HYDROBROMIDE\DOXYLAMINE SUCCINATE
     Indication: Sinusitis
     Dosage: OTHER QUANTITY : 2 CAPSULE(S);?FREQUENCY : EVERY 4 HOURS;?
     Route: 048
     Dates: start: 20230125, end: 20230128

REACTIONS (7)
  - Heart rate irregular [None]
  - Cold sweat [None]
  - Dyspnoea [None]
  - Nervousness [None]
  - Insomnia [None]
  - Dizziness [None]
  - Adverse drug reaction [None]

NARRATIVE: CASE EVENT DATE: 20230128
